FAERS Safety Report 4686724-X (Version None)
Quarter: 2005Q2

REPORT INFORMATION
  Report Type: 
  Country: None (occurrence: None)
  Receive Date: 20050606
  Receipt Date: 20050525
  Transmission Date: 20051028
  Serious: Yes (Death)
  Sender: FDA-Public Use
  Company Number: GBS050517512

PATIENT
  Sex: Male

DRUGS (1)
  1. CIALIS [Suspect]
     Dates: start: 20031101

REACTIONS (1)
  - DEATH [None]
